FAERS Safety Report 8260947-5 (Version None)
Quarter: 2012Q2

REPORT INFORMATION
  Report Type: 
  Country: None (occurrence: None)
  Receive Date: 20120405
  Receipt Date: 20120330
  Transmission Date: 20120825
  Serious: No
  Sender: FDA-Public Use
  Company Number: US-PFIZER INC-2011074915

PATIENT
  Sex: Female
  Weight: 71.655 kg

DRUGS (8)
  1. VITAMIN D [Concomitant]
     Dosage: UNK
  2. BYSTOLIC [Concomitant]
     Dosage: 5 MG, 1X/DAY
  3. ASPIRIN [Concomitant]
     Dosage: UNK
  4. COVERA-HS [Suspect]
     Indication: ANGINA PECTORIS
     Dosage: 240 MG, 1X/DAY
     Route: 048
     Dates: end: 20120218
  5. MUCINEX [Concomitant]
     Dosage: UNK
  6. IBUPROFEN (ADVIL) [Concomitant]
     Indication: FIBROMYALGIA
     Dosage: UNK, AS NEEDED
  7. COVERA-HS [Suspect]
     Indication: HYPERTENSION
     Dosage: 180 MG, 1X/DAY
     Route: 048
     Dates: start: 19960101
  8. HYDROCHLOROTHIAZIDE [Concomitant]
     Dosage: UNK

REACTIONS (3)
  - BLOOD PRESSURE INADEQUATELY CONTROLLED [None]
  - BLOOD CHOLESTEROL INCREASED [None]
  - ARTHRITIS [None]
